FAERS Safety Report 8075584-5 (Version None)
Quarter: 2012Q1

REPORT INFORMATION
  Report Type: 
  Country: None (occurrence: None)
  Receive Date: 20120127
  Receipt Date: 20120119
  Transmission Date: 20120608
  Serious: Yes (Hospitalization, Other)
  Sender: FDA-Public Use
  Company Number: US-ABBOTT-12P-163-0895149-00

PATIENT
  Sex: Female
  Weight: 59.02 kg

DRUGS (3)
  1. SIMCOR [Suspect]
     Indication: BLOOD CHOLESTEROL INCREASED
     Dosage: 500/20MG AT BEDTIME
     Dates: start: 20090101
  2. ASPIRIN [Concomitant]
     Indication: PRODUCT USED FOR UNKNOWN INDICATION
     Dosage: PRIOR TO HER DOSE OF SIMCOR WHEN SHE FIRST BEGAN TAKING SIMCOR
     Route: 048
  3. VITAMIN TAB [Concomitant]
     Indication: PRODUCT USED FOR UNKNOWN INDICATION
     Route: 048

REACTIONS (5)
  - GALLBLADDER NON-FUNCTIONING [None]
  - FLUSHING [None]
  - VASODILATATION [None]
  - FEELING HOT [None]
  - VEIN DISCOLOURATION [None]
